FAERS Safety Report 24245253 (Version 1)
Quarter: 2024Q3

REPORT INFORMATION
  Report Type: Report from Study
  Country: US (occurrence: US)
  Receive Date: 20240823
  Receipt Date: 20240823
  Transmission Date: 20241017
  Serious: Yes (Hospitalization, Other)
  Sender: ABBVIE
  Company Number: US-ABBVIE-5762133

PATIENT
  Sex: Female

DRUGS (2)
  1. RINVOQ [Suspect]
     Active Substance: UPADACITINIB
     Indication: Colitis ulcerative
     Route: 048
     Dates: start: 20231120, end: 20240509
  2. RINVOQ [Suspect]
     Active Substance: UPADACITINIB
     Indication: Colitis ulcerative
     Route: 048
     Dates: start: 2024

REACTIONS (12)
  - Hospitalisation [Recovering/Resolving]
  - Drug ineffective [Not Recovered/Not Resolved]
  - Colectomy total [Recovering/Resolving]
  - Illness [Recovering/Resolving]
  - Dysstasia [Unknown]
  - Pain [Recovered/Resolved]
  - Malaise [Unknown]
  - Feeding disorder [Unknown]
  - Fluid intake reduced [Unknown]
  - Laboratory test abnormal [Unknown]
  - Depressed mood [Recovering/Resolving]
  - Pain [Unknown]

NARRATIVE: CASE EVENT DATE: 20240101
